FAERS Safety Report 10549538 (Version 1)
Quarter: 2014Q4

REPORT INFORMATION
  Report Type: Spontaneous
  Country: GB (occurrence: GB)
  Receive Date: 20141028
  Receipt Date: 20141028
  Transmission Date: 20150529
  Serious: Yes (Life-Threatening, Hospitalization, Disabling, Other)
  Sender: FDA-Public Use
  Company Number: GB-WATSON-2014-22799

PATIENT
  Age: 48 Year
  Sex: Male
  Weight: 84 kg

DRUGS (1)
  1. OMEPRAZOLE (UNKNOWN) [Suspect]
     Active Substance: OMEPRAZOLE
     Indication: BARRETT^S OESOPHAGUS
     Dosage: 40 MG, DAILY
     Route: 048
     Dates: start: 20000101, end: 20130411

REACTIONS (8)
  - Cardiomyopathy [Not Recovered/Not Resolved]
  - Incorrect dose administered [Unknown]
  - Syncope [Recovered/Resolved with Sequelae]
  - Arrhythmia [Not Recovered/Not Resolved]
  - Incorrect drug administration duration [Unknown]
  - Diarrhoea [Recovered/Resolved with Sequelae]
  - Myocarditis [Not Recovered/Not Resolved]
  - Electrolyte imbalance [Recovered/Resolved with Sequelae]

NARRATIVE: CASE EVENT DATE: 20090101
